FAERS Safety Report 21124995 (Version 7)
Quarter: 2023Q2

REPORT INFORMATION
  Report Type: Spontaneous
  Country: JP (occurrence: JP)
  Receive Date: 20220725
  Receipt Date: 20230410
  Transmission Date: 20230722
  Serious: Yes (Hospitalization, Other)
  Sender: FDA-Public Use
  Company Number: JP-ASTELLAS-2022JP008697

PATIENT
  Age: 64 Year
  Sex: Female

DRUGS (4)
  1. PADCEV [Suspect]
     Active Substance: ENFORTUMAB VEDOTIN-EJFV
     Indication: Transitional cell carcinoma
     Route: 041
     Dates: start: 20220517, end: 20220531
  2. PADCEV [Suspect]
     Active Substance: ENFORTUMAB VEDOTIN-EJFV
     Dosage: 1.0 MG/KG, UNKNOWN FREQ.
     Route: 041
     Dates: start: 20220920, end: 20221004
  3. PADCEV [Suspect]
     Active Substance: ENFORTUMAB VEDOTIN-EJFV
     Dosage: UNK UNK, UNKNOWN FREQ.
     Route: 041
  4. PADCEV [Suspect]
     Active Substance: ENFORTUMAB VEDOTIN-EJFV
     Dosage: 1.0 MG/KG, UNKNOWN FREQ.
     Route: 041

REACTIONS (5)
  - Cardiac failure chronic [Recovering/Resolving]
  - Neuropathy peripheral [Recovered/Resolved]
  - Hepatic function abnormal [Recovered/Resolved]
  - Diarrhoea [Recovered/Resolved]
  - Amylase increased [Recovering/Resolving]

NARRATIVE: CASE EVENT DATE: 20220501
